FAERS Safety Report 8393391-0 (Version None)
Quarter: 2012Q2

REPORT INFORMATION
  Report Type: 
  Country: None (occurrence: None)
  Receive Date: 20120529
  Receipt Date: 20120522
  Transmission Date: 20120825
  Serious: Yes (Death)
  Sender: FDA-Public Use
  Company Number: US-UCBSA-056544

PATIENT
  Age: 32 Year
  Sex: Male
  Weight: 71.67 kg

DRUGS (3)
  1. LAMICTAL [Concomitant]
     Route: 048
  2. KLONOPIN [Concomitant]
     Route: 048
  3. KEPPRA [Suspect]
     Indication: CONVULSION
     Route: 048
     Dates: start: 20100728, end: 20120429

REACTIONS (1)
  - DEATH [None]
